FAERS Safety Report 5410884-6 (Version None)
Quarter: 2007Q3

REPORT INFORMATION
  Report Type: 
  Country: None (occurrence: None)
  Receive Date: 20070809
  Receipt Date: 20070809
  Transmission Date: 20080115
  Serious: Yes (Hospitalization)
  Sender: FDA-Public Use
  Company Number: None

PATIENT
  Age: 71 Year
  Sex: Female

DRUGS (8)
  1. HEPARIN [Suspect]
     Indication: ATRIAL FIBRILLATION
     Dosage: 5000 UNITS Q12 SQ
     Route: 058
     Dates: start: 20060426, end: 20060426
  2. ASPIRIN [Concomitant]
  3. PREDNISONE TAB [Concomitant]
  4. ADVAIR DISKUS 100/50 [Concomitant]
  5. DILTIAZEM [Concomitant]
  6. DIGOXIN [Concomitant]
  7. TOPROL-XL [Concomitant]
  8. LOVENOX [Concomitant]

REACTIONS (1)
  - HEPARIN-INDUCED THROMBOCYTOPENIA [None]
